FAERS Safety Report 8884764 (Version 1)
Quarter: 2012Q4

REPORT INFORMATION
  Report Type: 
  Country: US (occurrence: US)
  Receive Date: 20121105
  Receipt Date: 20121105
  Transmission Date: 20130627
  Serious: Yes (Other)
  Sender: FDA-Public Use
  Company Number: US-AMGEN-USASP2012069291

PATIENT
  Age: 68 Year
  Sex: Female

DRUGS (4)
  1. ENBREL [Suspect]
     Indication: PSORIASIS
     Dosage: UNK UNK, qwk
     Dates: end: 20121015
  2. VITAMINS, OTHER COMBINATIONS [Concomitant]
     Dosage: UNK
  3. FERROUS SULFATE [Concomitant]
     Dosage: UNK
  4. BABY ASPIRIN [Concomitant]
     Dosage: UNK

REACTIONS (5)
  - Hip arthroplasty [Unknown]
  - Oedema peripheral [Unknown]
  - Vascular rupture [Unknown]
  - Fatigue [Unknown]
  - Psoriasis [Unknown]
